FAERS Safety Report 25982906 (Version 1)
Quarter: 2025Q4

REPORT INFORMATION
  Report Type: Spontaneous
  Country: EU (occurrence: EU)
  Receive Date: 20251031
  Receipt Date: 20251031
  Transmission Date: 20260117
  Serious: Yes (Other)
  Sender: STRIDES
  Company Number: EU-STRIDES ARCOLAB LIMITED-2025SP013529

PATIENT
  Age: 10 Year
  Sex: Male

DRUGS (4)
  1. PREDNISONE [Suspect]
     Active Substance: PREDNISONE
     Indication: Vasculitis
     Dosage: 2 MILLIGRAM/KILOGRAM/DAY
     Route: 065
  2. PREDNISONE [Suspect]
     Active Substance: PREDNISONE
     Dosage: 0.3 MILLIGRAM/KILOGRAM/DAY
     Route: 065
  3. METHOTREXATE [Suspect]
     Active Substance: METHOTREXATE
     Indication: Vasculitis
     Dosage: UNK
     Route: 058
  4. RITUXIMAB [Concomitant]
     Active Substance: RITUXIMAB
     Indication: Vasculitis
     Dosage: 375 MILLIGRAM/SQ. METER, ONCE A WEEK
     Route: 065

REACTIONS (3)
  - Rebound effect [Recovered/Resolved]
  - Treatment failure [Unknown]
  - Off label use [Unknown]
